FAERS Safety Report 12059909 (Version 3)
Quarter: 2016Q2

REPORT INFORMATION
  Report Type: Spontaneous
  Country: CZ (occurrence: CZ)
  Receive Date: 20160210
  Receipt Date: 20160610
  Transmission Date: 20160815
  Serious: Yes (Death, Hospitalization, Other)
  Sender: FDA-Public Use
  Company Number: CZ-ALEXION PHARMACEUTICALS INC-A201600731

PATIENT
  Sex: Male

DRUGS (1)
  1. SOLIRIS [Suspect]
     Active Substance: ECULIZUMAB
     Indication: HAEMOLYTIC URAEMIC SYNDROME
     Dosage: 900 MG, SINGLE
     Route: 042
     Dates: start: 20160107, end: 20160107

REACTIONS (7)
  - Sepsis [Unknown]
  - Dermatomyositis [Unknown]
  - Multiple organ dysfunction syndrome [Fatal]
  - Immunosuppression [Unknown]
  - Drug ineffective [Unknown]
  - Thrombotic microangiopathy [Unknown]
  - Condition aggravated [Unknown]
